FAERS Safety Report 5626888-4 (Version None)
Quarter: 2008Q1

REPORT INFORMATION
  Report Type: 
  Country: None (occurrence: None)
  Receive Date: 20080212
  Receipt Date: 20080204
  Transmission Date: 20080703
  Serious: Yes (Disabling)
  Sender: FDA-Public Use
  Company Number: GXKR2008NL01429

PATIENT
  Age: 52 Year
  Sex: Female
  Weight: 58 kg

DRUGS (3)
  1. MIRTAZAPINE SANDOZ (NGX)(MIRTAZAPINE) TABLET, 30MG [Suspect]
     Indication: DEPRESSION
     Dosage: 1 DF, QD, ORAL
     Route: 048
     Dates: start: 20071224
  2. CLONAZEPAM [Suspect]
     Indication: DEPRESSION
     Dosage: 1 DF, QD, ORAL
     Route: 048
     Dates: start: 20070115
  3. HYDROCHLOROTHIAZIDE [Concomitant]

REACTIONS (3)
  - APATHY [None]
  - FATIGUE [None]
  - RESTLESSNESS [None]
